FAERS Safety Report 5982583-3 (Version None)
Quarter: 2008Q4

REPORT INFORMATION
  Report Type: 
  Country: None (occurrence: None)
  Receive Date: 20081208
  Receipt Date: 20081127
  Transmission Date: 20090506
  Serious: Yes (Hospitalization, Other)
  Sender: FDA-Public Use
  Company Number: PHBS2007BR16599

PATIENT
  Sex: Female
  Weight: 54 kg

DRUGS (30)
  1. ACLASTA [Suspect]
     Indication: OSTEOPOROSIS
     Dosage: 1 APPLICATION
     Route: 042
     Dates: start: 20070919
  2. ACLASTA [Suspect]
     Dosage: UNK
     Dates: start: 20080501, end: 20080501
  3. ACLASTA [Suspect]
     Dosage: UNK
     Dates: start: 20081112, end: 20081112
  4. TRAMADOL HCL [Concomitant]
     Indication: PAIN
     Dosage: 1 DF/DAY
     Route: 048
  5. LISADOR [Concomitant]
     Indication: PAIN
     Dosage: 40 DRP, 2-3 TIMES/DAY
  6. PROFENID [Concomitant]
     Indication: PAIN
     Dosage: UNK, UNK
  7. FELDENE [Concomitant]
     Indication: PAIN
     Dosage: 1 DF, QD
     Route: 060
  8. VITAMINS [Concomitant]
     Dosage: 1 AMPOULE
     Route: 048
     Dates: start: 20070919
  9. PAMELOR [Concomitant]
     Indication: INSOMNIA
     Dosage: 25 MG/DAY
     Route: 048
     Dates: start: 20050101
  10. RIVOTRIL [Concomitant]
     Indication: INSOMNIA
     Dosage: 2 MG 1 TABLET/DAY
     Route: 048
  11. RIVOTRIL [Concomitant]
     Dosage: 0.5 TABLET/DAY
     Route: 048
  12. HUMECTOL [Concomitant]
     Indication: INTESTINAL FUNCTIONAL DISORDER
     Dosage: 1 DF/NIGHT
     Route: 048
  13. HUMECTOL [Concomitant]
     Dosage: 2 DF/NIGHT
  14. CALTRATE +D [Concomitant]
     Indication: OSTEOPOROSIS
     Dosage: 600 MG, BID
     Route: 048
  15. CALTRATE +D [Concomitant]
     Dosage: 601 TAB AFTER BREAKFAST + 1 TAB AFTER DINNER
     Route: 048
  16. SYNTHROID [Concomitant]
     Indication: HYPOTHYROIDISM
     Dosage: 1 TAB/DAY
     Route: 048
  17. OMEPRAZOLE [Concomitant]
     Indication: ABDOMINAL PAIN
     Dosage: 20 MG, QD
     Route: 048
  18. OMEPRAZOLE [Concomitant]
     Dosage: 20 MG, BID
     Route: 048
  19. MIRTAZAPINE [Concomitant]
     Indication: DEPRESSION
     Dosage: 30 MG 1/2 TABLET/NIGHT
  20. ZOLPIDEM TARTRATE [Concomitant]
     Indication: DEPRESSION
     Dosage: 0.5 DF, QHS
     Route: 048
  21. MIACALCIN [Concomitant]
     Indication: OSTEOPOROSIS
  22. OXYCONTIN [Concomitant]
     Indication: PAIN
     Dosage: 20 MG
  23. TRI-FLEX [Concomitant]
     Dosage: 1 DF, BID
  24. VENLAFAXINE HYDROCHLORIDE [Concomitant]
     Dosage: 1 DF, QD
  25. ZOLPIDEM [Concomitant]
     Indication: DEPRESSION
  26. LIORAM [Concomitant]
     Indication: DEPRESSION
     Dosage: 10MG, 1/2 TAB/NIGHT
     Route: 048
  27. LIORAM [Concomitant]
     Indication: INSOMNIA
  28. TYLENOL (CAPLET) [Concomitant]
     Indication: PAIN
     Dosage: 2 DF, Q6H
     Route: 048
  29. TIZANIDINE HCL [Concomitant]
     Indication: MUSCLE RELAXANT THERAPY
     Dosage: 1 DF, QD
     Route: 048
  30. EFFEXOR [Concomitant]
     Indication: DEPRESSION
     Dosage: 75 MG, UNK

REACTIONS (16)
  - ABDOMINAL PAIN [None]
  - ABDOMINAL PAIN UPPER [None]
  - ANXIETY [None]
  - APHTHOUS STOMATITIS [None]
  - ARTHRALGIA [None]
  - BONE PAIN [None]
  - DEHYDRATION [None]
  - DEPRESSION [None]
  - DIARRHOEA [None]
  - FALL [None]
  - HIP FRACTURE [None]
  - INSOMNIA [None]
  - NAUSEA [None]
  - SPINAL FRACTURE [None]
  - VOMITING [None]
  - WEIGHT DECREASED [None]
